FAERS Safety Report 9759441 (Version 1)
Quarter: 2013Q4

REPORT INFORMATION
  Report Type: Spontaneous
  Country: BR (occurrence: BR)
  Receive Date: 20131216
  Receipt Date: 20131216
  Transmission Date: 20140711
  Serious: Yes (Other)
  Sender: FDA-Public Use
  Company Number: BR-MYLANLABS-2013S1027276

PATIENT
  Age: 27 Year
  Sex: Female

DRUGS (3)
  1. OXALIPLATIN [Suspect]
     Indication: COLORECTAL ADENOCARCINOMA
     Dosage: FOLFOX 5 CHEMOTHERAPY; UNDERWENT 2 CYCLES
     Route: 065
  2. FLUOROURACIL [Suspect]
     Indication: COLORECTAL ADENOCARCINOMA
     Dosage: FOLFOX 5 CHEMOTHERAPY; UNDERWENT 2 CYCLES
     Route: 065
  3. FOLINIC ACID [Suspect]
     Indication: COLORECTAL ADENOCARCINOMA
     Dosage: FOLFOX 5 CHEMOTHERAPY; UNDERWENT 2 CYCLES
     Route: 065

REACTIONS (1)
  - Posterior reversible encephalopathy syndrome [Recovering/Resolving]
